FAERS Safety Report 16129651 (Version 1)
Quarter: 2019Q1

REPORT INFORMATION
  Report Type: Spontaneous
  Country: GB (occurrence: GB)
  Receive Date: 20190328
  Receipt Date: 20190328
  Transmission Date: 20190418
  Serious: Yes (Other)
  Sender: FDA-Public Use
  Company Number: GB-BAXTER-2019BAX005754

PATIENT
  Age: 75 Year
  Sex: Male

DRUGS (12)
  1. FUROSEMIDE 10MG/ML SOLUTION FOR INJECTION [Suspect]
     Active Substance: FUROSEMIDE
     Indication: ATRIAL FIBRILLATION
     Route: 065
  2. CARVEDILOL. [Suspect]
     Active Substance: CARVEDILOL
     Indication: HYPERTENSION
     Route: 065
  3. ATORVASTATIN CALCIUM. [Suspect]
     Active Substance: ATORVASTATIN CALCIUM
     Indication: HYPERTENSION
     Dosage: 10 MG, 1X/DAY
     Route: 065
  4. AMIODARONE HCL [Suspect]
     Active Substance: AMIODARONE HYDROCHLORIDE
     Indication: ATRIAL FIBRILLATION
     Dosage: UNK (HALF QD)
     Route: 065
  5. AMIODARONE HCL [Suspect]
     Active Substance: AMIODARONE HYDROCHLORIDE
     Indication: DYSLIPIDAEMIA
     Route: 065
  6. ATORVASTATIN CALCIUM. [Suspect]
     Active Substance: ATORVASTATIN CALCIUM
     Indication: ATRIAL FIBRILLATION
     Route: 065
  7. FUROSEMIDE 10MG/ML SOLUTION FOR INJECTION [Suspect]
     Active Substance: FUROSEMIDE
     Indication: HYPERTENSION
     Dosage: 40 MG, 1X/DAY(HALF)
     Route: 065
  8. CARVEDILOL. [Suspect]
     Active Substance: CARVEDILOL
     Indication: ATRIAL FIBRILLATION
     Dosage: 3.125 UNK, BID
     Route: 065
  9. FUROSEMIDE 10MG/ML SOLUTION FOR INJECTION [Suspect]
     Active Substance: FUROSEMIDE
     Indication: DYSLIPIDAEMIA
     Dosage: 200 MG, UNK (TOTAL), INTERMITTENT BOLUSES
     Route: 042
  10. CARVEDILOL. [Suspect]
     Active Substance: CARVEDILOL
     Indication: DYSLIPIDAEMIA
     Route: 065
  11. ATORVASTATIN CALCIUM. [Suspect]
     Active Substance: ATORVASTATIN CALCIUM
     Indication: DYSLIPIDAEMIA
     Route: 065
  12. AMIODARONE HCL [Suspect]
     Active Substance: AMIODARONE HYDROCHLORIDE
     Indication: HYPERTENSION
     Route: 065

REACTIONS (10)
  - Rales [Unknown]
  - Oedema [Unknown]
  - Drug ineffective [Unknown]
  - Peripheral coldness [Unknown]
  - Pallor [Unknown]
  - Cardiac failure chronic [Unknown]
  - Blood pressure decreased [Unknown]
  - Hyperhidrosis [Unknown]
  - Tachypnoea [Unknown]
  - Jugular vein distension [Unknown]
